FAERS Safety Report 13109742 (Version 1)
Quarter: 2017Q1

REPORT INFORMATION
  Report Type: Spontaneous
  Country: US (occurrence: US)
  Receive Date: 20170112
  Receipt Date: 20170112
  Transmission Date: 20170428
  Serious: No
  Sender: FDA-Public Use
  Company Number: None

PATIENT
  Age: 57 Year
  Sex: Male

DRUGS (1)
  1. GILENYA [Suspect]
     Active Substance: FINGOLIMOD HYDROCHLORIDE
     Indication: MULTIPLE SCLEROSIS
     Dosage: 1 CAP DAILY PO
     Route: 048
     Dates: start: 20150129

REACTIONS (3)
  - Oropharyngeal pain [None]
  - Hepatic cirrhosis [None]
  - Hepatic lesion [None]

NARRATIVE: CASE EVENT DATE: 20170111
